FAERS Safety Report 8162660 (Version 2)
Quarter: 2014Q2

REPORT INFORMATION
  Report Type: Report from Study
  Country: FR (occurrence: FR)
  Receive Date: 20110929
  Receipt Date: 20140415
  Transmission Date: 20141212
  Serious: Yes (Hospitalization)
  Sender: FDA-Public Use
  Company Number: FR-PFIZER INC-2011222754

PATIENT
  Age: 60 Year
  Sex: Male

DRUGS (3)
  1. MYLOTARG [Suspect]
     Indication: ACUTE LEUKAEMIA
     Dosage: 10.68 MG, 1X/DAY
     Route: 042
     Dates: start: 20080921, end: 20080922
  2. ARACYTINE [Suspect]
     Indication: ACUTE LEUKAEMIA
     Dosage: 1780 MG, 2X/DAY
     Route: 042
     Dates: start: 20080918, end: 20080922
  3. MITOXANTRONE [Suspect]
     Indication: ACUTE LEUKAEMIA
     Dosage: 21.4 MG, 1X/DAY
     Route: 042
     Dates: start: 20080918, end: 20080919

REACTIONS (1)
  - Infectious colitis [Recovered/Resolved]
